FAERS Safety Report 10355836 (Version 1)
Quarter: 2014Q3

REPORT INFORMATION
  Report Type: Spontaneous
  Country: IT (occurrence: IT)
  Receive Date: 20140731
  Receipt Date: 20140731
  Transmission Date: 20150326
  Serious: Yes (Other)
  Sender: FDA-Public Use
  Company Number: PHHY2014IT093050

PATIENT
  Age: 59 Year
  Sex: Male

DRUGS (4)
  1. SULTIAME [Suspect]
     Active Substance: SULTHIAME
     Indication: EPILEPSY
  2. BARBITURATES [Suspect]
     Active Substance: UNSPECIFIED INGREDIENT
     Indication: EPILEPSY
  3. TOPIRAMATE. [Suspect]
     Active Substance: TOPIRAMATE
     Indication: EPILEPSY
     Dosage: 200 MG, DAILY
  4. PHENYTOIN. [Suspect]
     Active Substance: PHENYTOIN
     Indication: EPILEPSY

REACTIONS (3)
  - Concomitant disease aggravated [Recovered/Resolved]
  - Hiccups [Recovered/Resolved]
  - Convulsion [Recovered/Resolved]
